FAERS Safety Report 4542840-4 (Version None)
Quarter: 2004Q4

REPORT INFORMATION
  Report Type: 
  Country: None (occurrence: None)
  Receive Date: 20041229
  Receipt Date: 20041213
  Transmission Date: 20050328
  Serious: Yes (Hospitalization)
  Sender: FDA-Public Use
  Company Number: 206638

PATIENT
  Sex: Male

DRUGS (5)
  1. AVONEX [Suspect]
     Indication: MULTIPLE SCLEROSIS
     Dosage: 30 UG; QW; IM
     Route: 030
     Dates: start: 20010401, end: 20030101
  2. AVONEX [Suspect]
     Indication: MULTIPLE SCLEROSIS
     Dosage: 30 UG; QW; IM
     Route: 030
     Dates: start: 20030101, end: 20040901
  3. ZOCOR [Concomitant]
  4. REGLAN [Concomitant]
  5. BENTYL [Concomitant]

REACTIONS (4)
  - CHOLECYSTITIS [None]
  - MUSCLE RIGIDITY [None]
  - MUSCLE SPASTICITY [None]
  - PYREXIA [None]
